FAERS Safety Report 11546608 (Version 2)
Quarter: 2017Q1

REPORT INFORMATION
  Report Type: Spontaneous
  Country: US (occurrence: US)
  Receive Date: 20150924
  Receipt Date: 20170224
  Transmission Date: 20170428
  Serious: Yes (Other)
  Sender: FDA-Public Use
  Company Number: US-ELI_LILLY_AND_COMPANY-US201509004848

PATIENT
  Age: 34 Year
  Sex: Female
  Weight: 80 kg

DRUGS (2)
  1. CYMBALTA [Suspect]
     Active Substance: DULOXETINE HYDROCHLORIDE
     Indication: DEPRESSION
  2. CYMBALTA [Suspect]
     Active Substance: DULOXETINE HYDROCHLORIDE
     Indication: ANXIETY
     Dosage: 60 MG, QD
     Route: 048

REACTIONS (28)
  - Hallucination [Unknown]
  - Tremor [Unknown]
  - Nausea [Unknown]
  - Aggression [Unknown]
  - Paraesthesia [Unknown]
  - Fatigue [Unknown]
  - Intentional self-injury [Unknown]
  - Confusional state [Unknown]
  - Suicidal ideation [Unknown]
  - Seizure [Unknown]
  - Anxiety [Unknown]
  - Facial paralysis [Unknown]
  - Affect lability [Unknown]
  - Dizziness [Unknown]
  - Insomnia [Unknown]
  - Memory impairment [Unknown]
  - Nightmare [Unknown]
  - Hypoaesthesia [Unknown]
  - Sleep disorder [Unknown]
  - Vomiting [Unknown]
  - Hyperhidrosis [Unknown]
  - Migraine [Unknown]
  - Withdrawal syndrome [Unknown]
  - Disturbance in attention [Unknown]
  - Agitation [Unknown]
  - Headache [Unknown]
  - Sensory disturbance [Unknown]
  - Irritability [Unknown]

NARRATIVE: CASE EVENT DATE: 20170223
